FAERS Safety Report 7919724-4 (Version None)
Quarter: 2011Q4

REPORT INFORMATION
  Report Type: 
  Country: None (occurrence: None)
  Receive Date: 20111115
  Receipt Date: 20111031
  Transmission Date: 20120403
  Serious: Yes (Other)
  Sender: FDA-Public Use
  Company Number: HU-ACCORD-011305

PATIENT
  Age: 22 Year
  Sex: Female

DRUGS (4)
  1. ETOPOSIDE [Suspect]
     Indication: HODGKIN'S DISEASE
  2. IFOSFAMIDE [Suspect]
     Indication: HODGKIN'S DISEASE
  3. MESNA [Concomitant]
  4. CARBOPLATIN [Suspect]
     Indication: HODGKIN'S DISEASE

REACTIONS (2)
  - HODGKIN'S DISEASE NODULAR SCLEROSIS STAGE UNSPECIFIED [None]
  - OFF LABEL USE [None]
